FAERS Safety Report 7006794-3 (Version None)
Quarter: 2010Q3

REPORT INFORMATION
  Report Type: 
  Country: None (occurrence: None)
  Receive Date: 20100922
  Receipt Date: 20100915
  Transmission Date: 20110219
  Serious: No
  Sender: FDA-Public Use
  Company Number: US-BIOGENIDEC-2010BI032228

PATIENT
  Age: 60 Year
  Sex: Female

DRUGS (1)
  1. TYSABRI [Suspect]
     Indication: MULTIPLE SCLEROSIS
     Route: 042
     Dates: start: 20080714

REACTIONS (6)
  - ASTHENIA [None]
  - ASTHMA [None]
  - BALANCE DISORDER [None]
  - FATIGUE [None]
  - NASOPHARYNGITIS [None]
  - VIRAL INFECTION [None]
